FAERS Safety Report 11252776 (Version 1)
Quarter: 2015Q3

REPORT INFORMATION
  Report Type: Spontaneous
  Country: US (occurrence: US)
  Receive Date: 20150708
  Receipt Date: 20150708
  Transmission Date: 20151125
  Serious: No
  Sender: FDA-Public Use
  Company Number: US-MALLINCKRODT-T201501747

PATIENT

DRUGS (2)
  1. ROXICODONE [Suspect]
     Active Substance: OXYCODONE HYDROCHLORIDE
     Indication: PRODUCT USED FOR UNKNOWN INDICATION
     Dosage: 20 MG, UNK
     Route: 065
  2. ROXICODONE [Suspect]
     Active Substance: OXYCODONE HYDROCHLORIDE
     Dosage: 10 MG, UNK
     Route: 065

REACTIONS (8)
  - Drug effect delayed [Unknown]
  - Dysphagia [Unknown]
  - Oropharyngeal pain [Unknown]
  - Palpitations [Unknown]
  - Product quality issue [Unknown]
  - Rhinorrhoea [Unknown]
  - Unevaluable event [Unknown]
  - Rash [Unknown]
